FAERS Safety Report 13702990 (Version 1)
Quarter: 2017Q2

REPORT INFORMATION
  Report Type: Spontaneous
  Country: US (occurrence: US)
  Receive Date: 20170629
  Receipt Date: 20170629
  Transmission Date: 20170830
  Serious: Yes (Hospitalization, Disabling, Other)
  Sender: FDA-Public Use
  Company Number: US-SA-2017SA112233

PATIENT
  Age: 67 Year
  Sex: Male

DRUGS (1)
  1. AFLIBERCEPT [Suspect]
     Active Substance: AFLIBERCEPT
     Indication: AGE-RELATED MACULAR DEGENERATION
     Route: 065

REACTIONS (16)
  - Conjunctival hyperaemia [Recovering/Resolving]
  - Vision blurred [Recovering/Resolving]
  - Visual acuity reduced [Recovering/Resolving]
  - Corneal oedema [Recovering/Resolving]
  - Corneal opacity [Recovering/Resolving]
  - Intraocular pressure increased [Recovering/Resolving]
  - Eye discharge [Recovering/Resolving]
  - Eye pain [Recovering/Resolving]
  - Ocular hyperaemia [Recovering/Resolving]
  - Injection site infection [Recovering/Resolving]
  - Injection site reaction [Recovering/Resolving]
  - Cataract nuclear [Unknown]
  - Vitreous floaters [Recovering/Resolving]
  - Endophthalmitis [Recovering/Resolving]
  - Hypopyon [Recovered/Resolved]
  - Vitritis [Recovering/Resolving]
